FAERS Safety Report 24264631 (Version 2)
Quarter: 2025Q1

REPORT INFORMATION
  Report Type: Spontaneous
  Country: US (occurrence: US)
  Receive Date: 20240829
  Receipt Date: 20250226
  Transmission Date: 20250409
  Serious: Yes (Other)
  Sender: CATALYST PHARMA
  Company Number: US-CATALYST PHARMACEUTICALS, INC-EC-2022-118843

PATIENT
  Sex: Female
  Weight: 72.109 kg

DRUGS (5)
  1. FYCOMPA [Suspect]
     Active Substance: PERAMPANEL
     Indication: Product used for unknown indication
     Dosage: 4 MG TABLET - TAKE 1 TABLET BY MOUTH EVERY DAY AS DIRECTED
     Route: 048
     Dates: end: 2024
  2. FYCOMPA [Suspect]
     Active Substance: PERAMPANEL
     Dosage: 4 MG PER DAY FOR FOUR WEEKS, AND THEN IN FIVE WEEKS, DECREASE  TO 2 MG PER DAY FOR ONE WEEK AND THEN
     Route: 048
     Dates: start: 20240805
  3. BUSPIRONE [Suspect]
     Active Substance: BUSPIRONE HYDROCHLORIDE
     Indication: Product used for unknown indication
     Route: 065
  4. WELLBUTRIN [Concomitant]
     Active Substance: BUPROPION HYDROCHLORIDE
     Indication: Product used for unknown indication
     Route: 065
  5. HYDROXYCHLOROQUINE [Concomitant]
     Active Substance: HYDROXYCHLOROQUINE
     Indication: Product used for unknown indication
     Route: 065

REACTIONS (35)
  - Partial seizures [Unknown]
  - Seizure [Unknown]
  - Suicidal ideation [Unknown]
  - Abdominal distension [Unknown]
  - Ocular discomfort [Unknown]
  - Head discomfort [Unknown]
  - Vein rupture [Unknown]
  - Emotional disorder [Unknown]
  - Frustration tolerance decreased [Unknown]
  - Family stress [Unknown]
  - Hot flush [Unknown]
  - Hypertension [Unknown]
  - Joint injury [Unknown]
  - Condition aggravated [Not Recovered/Not Resolved]
  - Gastrointestinal disorder [Recovered/Resolved]
  - Condition aggravated [Unknown]
  - COVID-19 [Unknown]
  - Nasal congestion [Unknown]
  - Pain [Unknown]
  - Intervertebral disc protrusion [Unknown]
  - Inflammation [Unknown]
  - Stress [Unknown]
  - Chest discomfort [Unknown]
  - Lupus-like syndrome [Unknown]
  - Brain neoplasm [Not Recovered/Not Resolved]
  - Agitation [Unknown]
  - Balance disorder [Unknown]
  - Fall [Unknown]
  - Irritability [Unknown]
  - Aggression [Unknown]
  - Anger [Unknown]
  - Memory impairment [Unknown]
  - Adverse event [Not Recovered/Not Resolved]
  - Therapeutic response unexpected [Unknown]
  - Drug interaction [Unknown]

NARRATIVE: CASE EVENT DATE: 20210101
